FAERS Safety Report 25878573 (Version 1)
Quarter: 2025Q4

REPORT INFORMATION
  Report Type: Spontaneous
  Country: US (occurrence: US)
  Receive Date: 20251003
  Receipt Date: 20251003
  Transmission Date: 20260118
  Serious: No
  Sender: NOVARTIS
  Company Number: US-002147023-NVSC2025US146789

PATIENT
  Sex: Male

DRUGS (1)
  1. COSENTYX [Suspect]
     Active Substance: SECUKINUMAB
     Indication: Product used for unknown indication
     Dosage: UNK, 300MG/2ML, QMO
     Route: 058

REACTIONS (4)
  - Device malfunction [Unknown]
  - Injection site haemorrhage [Unknown]
  - Needle issue [Unknown]
  - Drug dose omission by device [Unknown]
